FAERS Safety Report 5243630-X (Version None)
Quarter: 2007Q1

REPORT INFORMATION
  Report Type: 
  Country: None (occurrence: None)
  Receive Date: 20070222
  Receipt Date: 20070212
  Transmission Date: 20070707
  Serious: Yes (Hospitalization)
  Sender: FDA-Public Use
  Company Number: 2007UW02841

PATIENT
  Age: 64 Year
  Sex: Female
  Weight: 83.9 kg

DRUGS (4)
  1. ARIMIDEX [Suspect]
     Indication: BREAST CANCER
     Route: 048
     Dates: start: 20070124
  2. TOPROL-XL [Concomitant]
     Route: 048
  3. NEXIUM [Concomitant]
     Route: 048
  4. XANAX [Concomitant]

REACTIONS (1)
  - CONVULSION [None]
